FAERS Safety Report 6943346-5 (Version None)
Quarter: 2010Q3

REPORT INFORMATION
  Report Type: 
  Country: None (occurrence: None)
  Receive Date: 20100823
  Receipt Date: 20081222
  Transmission Date: 20110219
  Serious: Yes (Death)
  Sender: FDA-Public Use
  Company Number: 2009PV000001

PATIENT
  Age: 60 Year
  Sex: Male
  Weight: 81 kg

DRUGS (8)
  1. DEPOCYT [Suspect]
     Indication: NON-HODGKIN'S LYMPHOMA
     Dosage: 50 MG; QD; INTH
     Route: 037
     Dates: start: 20081112, end: 20081202
  2. METHOTREXATE [Suspect]
     Dosage: 6000 MG; QD; IV
     Route: 042
     Dates: start: 20081111, end: 20081202
  3. DOXORUBICIN HCL [Suspect]
     Dosage: 120 MG; QD; IV
     Route: 042
     Dates: start: 20081111, end: 20081203
  4. CYCLOPHOSPHAMIDE [Suspect]
     Dosage: 1000 MG; QD; IV
     Route: 042
     Dates: start: 20081112, end: 20081205
  5. PREDNISONE [Suspect]
     Dosage: 120 MG; QD; PO
     Route: 048
     Dates: start: 20081110, end: 20091205
  6. VINCRISTINE [Suspect]
     Dosage: 2 MG; QD; IV
     Route: 042
     Dates: start: 20081111, end: 20081202
  7. FOLIC ACID [Suspect]
     Dosage: 200 MG; ; IV
     Route: 042
     Dates: start: 20081112, end: 20081203
  8. RITUXAN [Suspect]
     Dosage: 760 MG; QD; IV
     Route: 042
     Dates: start: 20081110, end: 20081201

REACTIONS (5)
  - BACTEROIDES INFECTION [None]
  - BONE MARROW FAILURE [None]
  - DRUG TOXICITY [None]
  - NEUTROPENIC INFECTION [None]
  - RENAL FAILURE [None]
